FAERS Safety Report 15102941 (Version 2)
Quarter: 2018Q4

REPORT INFORMATION
  Report Type: Spontaneous
  Country: US (occurrence: US)
  Receive Date: 20180703
  Receipt Date: 20181108
  Transmission Date: 20190204
  Serious: No
  Sender: FDA-Public Use
  Company Number: US-PFIZER INC-2018268571

PATIENT
  Age: 73 Year
  Sex: Female

DRUGS (1)
  1. XELJANZ XR [Suspect]
     Active Substance: TOFACITINIB CITRATE
     Dosage: 11 MG, UNK
     Dates: start: 201804

REACTIONS (5)
  - Blood cholesterol increased [Unknown]
  - Product dose omission [Unknown]
  - Influenza [Unknown]
  - Pain [Unknown]
  - Hepatic enzyme increased [Unknown]
